FAERS Safety Report 8621366 (Version 2)
Quarter: 2012Q4

REPORT INFORMATION
  Report Type: 
  Country: US (occurrence: US)
  Receive Date: 20120619
  Receipt Date: 20120911
  Transmission Date: 20130627
  Serious: No
  Sender: FDA-Public Use
  Company Number: US-ASTRAZENECA-2012SE39435

PATIENT
  Sex: Female

DRUGS (1)
  1. NEXIUM [Suspect]
     Dosage: EVERY OTHER DAY
     Route: 048

REACTIONS (3)
  - Gastrooesophageal reflux disease [Unknown]
  - Dyspnoea [Unknown]
  - Intentional drug misuse [Unknown]
